FAERS Safety Report 7373153-3 (Version None)
Quarter: 2011Q1

REPORT INFORMATION
  Report Type: 
  Country: None (occurrence: None)
  Receive Date: 20110324
  Receipt Date: 20110314
  Transmission Date: 20110831
  Serious: Yes (Hospitalization)
  Sender: FDA-Public Use
  Company Number: ES-PFIZER INC-2011060133

PATIENT
  Age: 63 Year
  Sex: Female

DRUGS (10)
  1. ACFOL [Concomitant]
  2. TRANGOREX [Suspect]
     Indication: ATRIAL FIBRILLATION
     Dosage: UNK
     Route: 048
     Dates: start: 20100303, end: 20100310
  3. PRIMPERAN TAB [Concomitant]
  4. OMEPRAZOLE [Concomitant]
  5. ILOPROST [Concomitant]
  6. HYDROXOCOBALAMIN [Concomitant]
  7. ALDOCUMAR [Concomitant]
  8. DIGOXIN [Suspect]
     Indication: ATRIAL FIBRILLATION
     Dosage: UNK
     Route: 048
     Dates: start: 20100311, end: 20100321
  9. ALLOPURINOL [Concomitant]
  10. RENAGEL [Concomitant]

REACTIONS (3)
  - TOXICITY TO VARIOUS AGENTS [None]
  - DRUG INTERACTION [None]
  - NODAL RHYTHM [None]
